FAERS Safety Report 15215438 (Version 1)
Quarter: 2018Q3

REPORT INFORMATION
  Report Type: Spontaneous
  Country: US (occurrence: US)
  Receive Date: 20180730
  Receipt Date: 20180730
  Transmission Date: 20181010
  Serious: Yes (Death, Hospitalization)
  Sender: FDA-Public Use
  Company Number: US-TEVA-2018-US-934749

PATIENT
  Age: 82 Year
  Sex: Female

DRUGS (7)
  1. FUROSEMIDE. [Concomitant]
     Active Substance: FUROSEMIDE
     Indication: CARDIAC FAILURE CONGESTIVE
     Route: 065
  2. FUROSEMIDE. [Concomitant]
     Active Substance: FUROSEMIDE
     Indication: EJECTION FRACTION DECREASED
  3. DIGOXIN. [Concomitant]
     Active Substance: DIGOXIN
     Indication: EJECTION FRACTION DECREASED
  4. APIXABAN [Concomitant]
     Active Substance: APIXABAN
     Indication: ATRIAL FIBRILLATION
     Route: 065
  5. DIGOXIN. [Concomitant]
     Active Substance: DIGOXIN
     Indication: CARDIAC FAILURE CONGESTIVE
     Route: 065
  6. METHOTREXATE. [Suspect]
     Active Substance: METHOTREXATE
     Indication: RHEUMATOID ARTHRITIS
     Route: 065
  7. REPAGLINIDE. [Concomitant]
     Active Substance: REPAGLINIDE
     Indication: TYPE 2 DIABETES MELLITUS
     Route: 065

REACTIONS (16)
  - Pancytopenia [Fatal]
  - Ulcer haemorrhage [Unknown]
  - Melaena [Unknown]
  - Hypotension [Not Recovered/Not Resolved]
  - Condition aggravated [Fatal]
  - Toxicity to various agents [Fatal]
  - Acute respiratory failure [Fatal]
  - Anaemia macrocytic [Not Recovered/Not Resolved]
  - Septic shock [Fatal]
  - Neutropenia [Not Recovered/Not Resolved]
  - Chronic kidney disease [Fatal]
  - Haematemesis [Unknown]
  - Pneumonia klebsiella [Recovered/Resolved]
  - Sepsis [Fatal]
  - Respiratory failure [Fatal]
  - Mouth ulceration [Unknown]
